APPROVED DRUG PRODUCT: JORNAY PM
Active Ingredient: METHYLPHENIDATE HYDROCHLORIDE
Strength: 20MG
Dosage Form/Route: CAPSULE, EXTENDED RELEASE;ORAL
Application: N209311 | Product #001
Applicant: IRONSHORE PHARMACEUTICALS INC A WHOLLY OWNED SUB OF COLLEGIUM PHARMACEUTICAL INC
Approved: Aug 8, 2018 | RLD: Yes | RS: No | Type: RX

PATENTS:
Patent 10292937 | Expires: Mar 23, 2032
Patent 9603809 | Expires: Mar 23, 2032
Patent 8916588 | Expires: Mar 23, 2032
Patent 9028868 | Expires: Mar 23, 2032
Patent 10617651 | Expires: Mar 23, 2032
Patent 9034902 | Expires: Mar 23, 2032
Patent 10881618 | Expires: Mar 23, 2032
Patent 11911518 | Expires: Mar 23, 2032
Patent 11241391 | Expires: Mar 23, 2032
Patent 11241392 | Expires: Mar 23, 2032
Patent 9498447 | Expires: Mar 23, 2032
Patent 9283214 | Expires: Mar 23, 2032
Patent 9023389 | Expires: Mar 23, 2032
Patent 10905652 | Expires: Mar 23, 2032
Patent 8927010 | Expires: Mar 23, 2032
Patent 10182995 | Expires: Mar 23, 2032